FAERS Safety Report 5455055-2 (Version None)
Quarter: 2007Q3

REPORT INFORMATION
  Report Type: 
  Country: None (occurrence: None)
  Receive Date: 20070913
  Receipt Date: 20070830
  Transmission Date: 20080115
  Serious: Yes (Hospitalization)
  Sender: FDA-Public Use
  Company Number: DSM-2007-00645

PATIENT
  Age: 50 Year
  Sex: Male
  Weight: 80 kg

DRUGS (5)
  1. OLMESARTAN MEDOXOMIL [Suspect]
     Indication: HYPERTENSION
     Dosage: 20 MG (20 MG, 1 IN 1 D), ORAL
     Route: 048
     Dates: start: 20070427
  2. INDAPAMIDE (INDAPAMIDE) (INDAPAMIDE) [Concomitant]
  3. KREDEX (CARVEDILOL) (CARVEDILOL) [Concomitant]
  4. ALLOPURINOL (ALLOPURINOL) (ALLOPURINOL) [Concomitant]
  5. PRAREDUCT (PRAVASTATIN SODIUM) (PRAVASTATIN SODIUM) [Concomitant]

REACTIONS (2)
  - BLOOD ALCOHOL INCREASED [None]
  - SYNCOPE [None]
